FAERS Safety Report 24078323 (Version 1)
Quarter: 2024Q3

REPORT INFORMATION
  Report Type: Spontaneous
  Country: FR (occurrence: FR)
  Receive Date: 20240711
  Receipt Date: 20240711
  Transmission Date: 20241017
  Serious: Yes (Hospitalization)
  Sender: PFIZER
  Company Number: None

PATIENT
  Age: 7 Year
  Sex: Male

DRUGS (9)
  1. CLINDAMYCIN [Suspect]
     Active Substance: CLINDAMYCIN
     Indication: Antibiotic therapy
     Dosage: 200 MG, 3X/DAY (EVERY 8 HOURS)
     Route: 042
     Dates: start: 20240424, end: 20240428
  2. VISIPAQUE [Suspect]
     Active Substance: IODIXANOL
     Dosage: 1 INJECTION (270 MG D I/ML)
     Route: 042
     Dates: start: 20240423, end: 20240423
  3. CEFOTAXIME [Suspect]
     Active Substance: CEFOTAXIME SODIUM
     Indication: Antibiotic therapy
     Dosage: 1 G, 3X/DAY (EVERY 8 HOURS)
     Route: 042
     Dates: start: 20240423, end: 20240423
  4. CEFOTAXIME [Suspect]
     Active Substance: CEFOTAXIME SODIUM
     Dosage: 1 G, 3X/DAY (EVERY 8 HOURS)
     Route: 042
     Dates: start: 20240425, end: 20240428
  5. METRONIDAZOLE [Suspect]
     Active Substance: METRONIDAZOLE
     Indication: Antibiotic therapy
     Dosage: 200 MG, 3X/DAY (EVERY 8 HOURS)
     Route: 042
     Dates: start: 20240423, end: 20240528
  6. DEXMEDETOMIDINE HYDROCHLORIDE [Concomitant]
     Active Substance: DEXMEDETOMIDINE HYDROCHLORIDE
     Dosage: 100 MICROGRAMMES/ML
     Route: 042
     Dates: start: 20240424, end: 20240506
  7. METHYLPREDNISOLONE [Concomitant]
     Active Substance: METHYLPREDNISOLONE
     Indication: Infection
     Dosage: UNK
     Route: 042
     Dates: start: 20240424, end: 20240506
  8. SUFENTANIL [Concomitant]
     Active Substance: SUFENTANIL
     Dosage: UNK
     Route: 042
     Dates: start: 20240425, end: 20240502
  9. MIDAZOLAM [Concomitant]
     Active Substance: MIDAZOLAM
     Dosage: UNK
     Route: 042
     Dates: start: 20240425, end: 20240502

REACTIONS (2)
  - Face oedema [Recovered/Resolved]
  - Rash maculo-papular [Recovering/Resolving]

NARRATIVE: CASE EVENT DATE: 20240428
